FAERS Safety Report 9649160 (Version 2)
Quarter: 2013Q4

REPORT INFORMATION
  Report Type: Spontaneous
  Country: US (occurrence: US)
  Receive Date: 20131028
  Receipt Date: 20131028
  Transmission Date: 20140711
  Serious: No
  Sender: FDA-Public Use
  Company Number: -SAAVPROD-POMP-1002471

PATIENT
  Age: 65 Year
  Sex: Female
  Weight: 62.8 kg

DRUGS (10)
  1. ALGLUCOSIDASE ALFA [Suspect]
     Indication: GLYCOGEN STORAGE DISEASE TYPE II
     Dosage: 19.1 MG/KG, Q2W
     Route: 042
     Dates: start: 20100329
  2. ALGLUCOSIDASE ALFA [Suspect]
     Indication: GLYCOGEN STORAGE DISEASE TYPE II
     Dosage: 19.1 MG/KG, Q2W
     Route: 042
     Dates: start: 20100329
  3. LORATADINE [Concomitant]
     Indication: PREMEDICATION
     Dosage: UNK
     Route: 065
  4. LORATADINE [Concomitant]
     Indication: PREMEDICATION
     Dosage: UNK
     Route: 065
  5. IBUPROFEN [Concomitant]
     Indication: PREMEDICATION
     Dosage: UNK
     Route: 065
  6. IBUPROFEN [Concomitant]
     Indication: PREMEDICATION
     Dosage: UNK
     Route: 065
  7. PREDNISONE [Concomitant]
     Indication: PREMEDICATION
     Dosage: 15 MG, UNK
     Route: 065
  8. PREDNISONE [Concomitant]
     Indication: PREMEDICATION
     Dosage: 15 MG, UNK
     Route: 065
  9. ESOMEPRAZOLE [Concomitant]
     Indication: PRODUCT USED FOR UNKNOWN INDICATION
     Dosage: 40 MG, QD
     Route: 065
  10. ESOMEPRAZOLE [Concomitant]
     Indication: PRODUCT USED FOR UNKNOWN INDICATION
     Dosage: 40 MG, QD
     Route: 065

REACTIONS (2)
  - Dyspepsia [Recovered/Resolved]
  - Dizziness [Recovered/Resolved]
